FAERS Safety Report 5192743-X (Version None)
Quarter: 2006Q4

REPORT INFORMATION
  Report Type: 
  Country: None (occurrence: None)
  Receive Date: 20061220
  Receipt Date: 20061205
  Transmission Date: 20070319
  Serious: Yes (Other)
  Sender: FDA-Public Use
  Company Number: 061122-0001044

PATIENT
  Age: 17 Year
  Sex: Male

DRUGS (3)
  1. ELSPAR [Suspect]
     Indication: ACUTE LYMPHOCYTIC LEUKAEMIA
     Dosage: 5000 IU/M**2; THREE ADMINISTRATIONS;
  2. ANTHRACYCLINES [Concomitant]
  3. PREDNISONE TAB [Concomitant]

REACTIONS (1)
  - ISCHAEMIC STROKE [None]
